FAERS Safety Report 15128965 (Version 1)
Quarter: 2018Q3

REPORT INFORMATION
  Report Type: Spontaneous
  Country: US (occurrence: US)
  Receive Date: 20180711
  Receipt Date: 20180711
  Transmission Date: 20181010
  Serious: Yes (Other)
  Sender: FDA-Public Use
  Company Number: US-ASTRAZENECA-2018SE61664

PATIENT
  Age: 31 Year
  Sex: Female
  Weight: 110.2 kg

DRUGS (4)
  1. BYDUREON [Suspect]
     Active Substance: EXENATIDE
     Indication: TYPE 2 DIABETES MELLITUS
     Route: 065
     Dates: start: 20170906, end: 201711
  2. BYETTA [Suspect]
     Active Substance: EXENATIDE
     Indication: TYPE 2 DIABETES MELLITUS
     Route: 065
  3. LOSARTAN. [Concomitant]
     Active Substance: LOSARTAN
     Indication: DIABETES MELLITUS
  4. METFORMIN [Concomitant]
     Active Substance: METFORMIN HYDROCHLORIDE
     Indication: DIABETES MELLITUS

REACTIONS (3)
  - Injection site pain [Unknown]
  - Anxiety [Unknown]
  - Injection site reaction [Unknown]
